FAERS Safety Report 21063960 (Version 1)
Quarter: 2022Q3

REPORT INFORMATION
  Report Type: Spontaneous
  Country: US (occurrence: None)
  Receive Date: 20220708
  Receipt Date: 20220708
  Transmission Date: 20221027
  Serious: Yes (Hospitalization)
  Sender: FDA-Public Use
  Company Number: None

PATIENT
  Sex: Male

DRUGS (8)
  1. TACROLIMUS [Suspect]
     Active Substance: TACROLIMUS
     Indication: Bone marrow transplant
     Dosage: TAKE 4 CAPSULES BY MOUTH TWICE DAILY (TOTAL DOSING IS 4.5MG TWICE DAILY)?
     Route: 048
     Dates: start: 20210817
  2. TACROLIMUS [Suspect]
     Active Substance: TACROLIMUS
     Dosage: FREQUENCY : TWICE A DAY;?TAKE 4 CAPSULES BY MOUTH TWICE DAILY (TOTAL DOSING IS 4.5MG TWICE DAILY)?
     Route: 048
     Dates: start: 20210817
  3. AZITHROMYCIN [Concomitant]
     Active Substance: AZITHROMYCIN
  4. BASAGLAR INJ [Concomitant]
  5. FLOVENT HFA AER [Concomitant]
  6. MONTELUKAST SODIUM [Concomitant]
     Active Substance: MONTELUKAST SODIUM
  7. NOVOLIN R INJ U-100 [Concomitant]
  8. VITAMIN D3 [Concomitant]
     Active Substance: CHOLECALCIFEROL

REACTIONS (1)
  - Hospitalisation [None]
